FAERS Safety Report 25092485 (Version 1)
Quarter: 2025Q1

REPORT INFORMATION
  Report Type: Spontaneous
  Country: US (occurrence: US)
  Receive Date: 20250319
  Receipt Date: 20250319
  Transmission Date: 20250409
  Serious: No
  Sender: SANOFI AVENTIS
  Company Number: US-SA-2025SA078781

PATIENT
  Age: 70 Year
  Sex: Male

DRUGS (7)
  1. DUPIXENT [Suspect]
     Active Substance: DUPILUMAB
     Indication: Dermatitis atopic
     Route: 058
     Dates: start: 20240417
  2. PENICILLIN V [Concomitant]
     Active Substance: PENICILLIN V
  3. OZEMPIC [Concomitant]
     Active Substance: SEMAGLUTIDE
  4. CARVEDILOL [Concomitant]
     Active Substance: CARVEDILOL
  5. PIOGLITAZONE [Concomitant]
     Active Substance: PIOGLITAZONE
  6. FINASTERIDE [Concomitant]
     Active Substance: FINASTERIDE
  7. CHLORTHALIDONE [Concomitant]
     Active Substance: CHLORTHALIDONE

REACTIONS (1)
  - Tooth infection [Unknown]

NARRATIVE: CASE EVENT DATE: 20250314
